FAERS Safety Report 9531450 (Version 1)
Quarter: 2013Q3

REPORT INFORMATION
  Report Type: Spontaneous
  Country: US (occurrence: None)
  Receive Date: 20130916
  Receipt Date: 20130916
  Transmission Date: 20140515
  Serious: Yes (Other)
  Sender: FDA-Public Use
  Company Number: None

PATIENT
  Age: 61 Year
  Sex: Female
  Weight: 74.84 kg

DRUGS (1)
  1. AMBIEN [Suspect]
     Dosage: 1 PILL AT BEDTIME TAKEN BY MOUTH
     Route: 048
     Dates: start: 20130601, end: 20130717

REACTIONS (4)
  - Insomnia [None]
  - Nausea [None]
  - Dizziness [None]
  - Vision blurred [None]
